FAERS Safety Report 14262012 (Version 1)
Quarter: 2017Q4

REPORT INFORMATION
  Report Type: Report from Study
  Country: US (occurrence: US)
  Receive Date: 20171208
  Receipt Date: 20171208
  Transmission Date: 20180321
  Serious: Yes (Other)
  Sender: FDA-Public Use
  Company Number: US-GILEAD-2017-0306009

PATIENT
  Age: 79 Year
  Sex: Female
  Weight: 77.98 kg

DRUGS (1)
  1. AMBRISENTAN [Suspect]
     Active Substance: AMBRISENTAN
     Indication: PRODUCT USED FOR UNKNOWN INDICATION
     Dosage: 5 MG, UNK
     Route: 065

REACTIONS (3)
  - Weight decreased [Unknown]
  - Product use issue [Not Recovered/Not Resolved]
  - Cardiac failure congestive [Not Recovered/Not Resolved]
